FAERS Safety Report 21205910 (Version 1)
Quarter: 2022Q3

REPORT INFORMATION
  Report Type: Spontaneous
  Country: GB (occurrence: GB)
  Receive Date: 20220812
  Receipt Date: 20220812
  Transmission Date: 20221027
  Serious: Yes (Death, Life-Threatening, Other)
  Sender: FDA-Public Use
  Company Number: GB-NOVARTISPH-NVSC2022GB182252

PATIENT
  Sex: Male

DRUGS (6)
  1. ONDANSETRON [Suspect]
     Active Substance: ONDANSETRON
     Indication: Premedication
     Dosage: UNK
     Route: 042
     Dates: start: 20190624
  2. ONDANSETRON [Suspect]
     Active Substance: ONDANSETRON
     Indication: Intraoperative care
  3. ONDANSETRON [Suspect]
     Active Substance: ONDANSETRON
     Indication: Adverse drug reaction
  4. FENTANYL [Suspect]
     Active Substance: FENTANYL
     Indication: Sedative therapy
     Dosage: UNK
     Route: 042
     Dates: start: 20190624
  5. FENTANYL [Suspect]
     Active Substance: FENTANYL
     Indication: Colonoscopy
  6. FENTANYL [Suspect]
     Active Substance: FENTANYL
     Indication: Adverse drug reaction

REACTIONS (1)
  - Serotonin syndrome [Fatal]

NARRATIVE: CASE EVENT DATE: 20190624
